FAERS Safety Report 20769709 (Version 3)
Quarter: 2022Q3

REPORT INFORMATION
  Report Type: Spontaneous
  Country: US (occurrence: US)
  Receive Date: 20220429
  Receipt Date: 20220819
  Transmission Date: 20221026
  Serious: No
  Sender: FDA-Public Use
  Company Number: US-Vifor (International) Inc.-VIT-2022-02431

PATIENT
  Sex: Female
  Weight: 69.916 kg

DRUGS (3)
  1. VELTASSA [Suspect]
     Active Substance: PATIROMER
     Indication: Hyperkalaemia
     Route: 048
     Dates: start: 20210722
  2. HYDRALAZINE [Concomitant]
     Active Substance: HYDRALAZINE HYDROCHLORIDE
  3. LASIX [Concomitant]
     Active Substance: FUROSEMIDE

REACTIONS (4)
  - Abdominal distension [Not Recovered/Not Resolved]
  - Abdominal discomfort [Unknown]
  - Constipation [Not Recovered/Not Resolved]
  - Product dose omission issue [Unknown]
